FAERS Safety Report 5395152-3 (Version None)
Quarter: 2007Q3

REPORT INFORMATION
  Report Type: 
  Country: None (occurrence: None)
  Receive Date: 20070724
  Receipt Date: 20070718
  Transmission Date: 20080115
  Serious: No
  Sender: FDA-Public Use
  Company Number: US-AVENTIS-200715049US

PATIENT
  Age: 37 Year
  Sex: Male

DRUGS (5)
  1. APIDRA [Suspect]
     Dosage: DOSE: 1 UNIT PER 10 GRAMS OF CARBS; FREQUENCY: BEFORE MEALS
     Dates: start: 20070628
  2. LEVEMIR [Concomitant]
     Dosage: DOSE: UNK
  3. ALLEGRA [Concomitant]
     Dosage: DOSE: UNK
  4. FACTOR VIII [Concomitant]
     Dosage: DOSE: UNK
  5. NOVOLOG [Concomitant]
     Dosage: DOSE: UNK

REACTIONS (4)
  - DYSPHAGIA [None]
  - NAUSEA [None]
  - PHARYNGOLARYNGEAL PAIN [None]
  - VOMITING [None]
